FAERS Safety Report 6100814-6 (Version None)
Quarter: 2009Q1

REPORT INFORMATION
  Report Type: 
  Country: None (occurrence: None)
  Receive Date: 20090303
  Receipt Date: 20090223
  Transmission Date: 20090719
  Serious: Yes (Hospitalization)
  Sender: FDA-Public Use
  Company Number: US-GENENTECH-277925

PATIENT
  Sex: Female

DRUGS (4)
  1. BEVACIZUMAB [Suspect]
     Indication: BREAST CANCER
     Dosage: 10 MG/KG, UNK
     Route: 042
     Dates: start: 20090127
  2. ABRAXANE [Suspect]
     Indication: BREAST CANCER
     Dosage: 144 MG, UNK
  3. ADRIAMYCIN PFS [Suspect]
     Indication: BREAST CANCER
     Dosage: 60 MG/M2, Q2W
     Route: 042
     Dates: start: 20090127
  4. CYTOXAN [Suspect]
     Indication: BREAST CANCER
     Dosage: 600 MG/M2, UNK
     Route: 042
     Dates: start: 20090127

REACTIONS (3)
  - DIARRHOEA [None]
  - FEBRILE NEUTROPENIA [None]
  - MUCOSAL INFLAMMATION [None]
